FAERS Safety Report 5483378-X (Version None)
Quarter: 2007Q4

REPORT INFORMATION
  Report Type: 
  Country: None (occurrence: None)
  Receive Date: 20071009
  Receipt Date: 20071009
  Transmission Date: 20080405
  Serious: Yes (Other)
  Sender: FDA-Public Use
  Company Number: None

PATIENT
  Age: 57 Year
  Sex: Female
  Weight: 102.0593 kg

DRUGS (2)
  1. LOTREL [Suspect]
     Indication: HYPERTENSION
     Dosage: ONCE DAY PO X 3D
     Route: 048
     Dates: start: 20070622, end: 20070625
  2. LOTREL [Suspect]
     Indication: HYPERTENSION
     Dosage: ONE DAILY PO X 14D
     Route: 048
     Dates: start: 20070626

REACTIONS (3)
  - DIPLOPIA [None]
  - FEELING ABNORMAL [None]
  - VISUAL DISTURBANCE [None]
